FAERS Safety Report 6865208 (Version 4)
Quarter: 2013Q1

REPORT INFORMATION
  Report Type: Spontaneous
  Country: DK (occurrence: DK)
  Receive Date: 20081223
  Receipt Date: 20130314
  Transmission Date: 20140127
  Serious: Yes (Hospitalization, Disabling, Other)
  Sender: FDA-Public Use
  Company Number: DK-PFIZER INC-2008154818

PATIENT
  Age: 30 Year
  Sex: Female

DRUGS (1)
  1. CYTOTEC [Suspect]
     Indication: LABOUR INDUCTION
     Dosage: UNK
     Route: 067
     Dates: start: 20071226, end: 20071227

REACTIONS (6)
  - Uterine rupture [Recovered/Resolved]
  - Vaginal haemorrhage [Recovered/Resolved]
  - Hysterectomy [Recovered/Resolved]
  - Postpartum hypopituitarism [Not Recovered/Not Resolved]
  - Retained placenta or membranes [Recovered/Resolved]
  - Off label use [Recovered/Resolved]
